FAERS Safety Report 11121570 (Version 1)
Quarter: 2015Q2

REPORT INFORMATION
  Report Type: Spontaneous
  Country: US (occurrence: None)
  Receive Date: 20150518
  Receipt Date: 20150518
  Transmission Date: 20150821
  Serious: Yes (Other)
  Sender: FDA-Public Use
  Company Number: None

PATIENT
  Age: 62 Year
  Sex: Female
  Weight: 86.18 kg

DRUGS (28)
  1. SINEMET [Suspect]
     Active Substance: CARBIDOPA\LEVODOPA
     Indication: PARKINSON^S DISEASE
     Route: 048
     Dates: start: 20150429, end: 20150516
  2. UROCIT-K [Concomitant]
     Active Substance: POTASSIUM CITRATE
  3. VOLTAREN [Concomitant]
     Active Substance: DICLOFENAC SODIUM
  4. MELITONIN [Concomitant]
  5. TRICOR [Concomitant]
     Active Substance: FENOFIBRATE
  6. NTG [Concomitant]
     Active Substance: NITROGLYCERIN
  7. TRIAMCINOLONE ACETONIDE. [Concomitant]
     Active Substance: TRIAMCINOLONE ACETONIDE
  8. JUST D/C^D [Concomitant]
  9. C-PAP [Concomitant]
  10. CENTRUM SILVER [Concomitant]
     Active Substance: VITAMINS
  11. ALEVE [Concomitant]
     Active Substance: NAPROXEN SODIUM
  12. SINEMET [Concomitant]
     Active Substance: CARBIDOPA\LEVODOPA
  13. VITAMIN D3 [Concomitant]
     Active Substance: CHOLECALCIFEROL
  14. NORVASC [Concomitant]
     Active Substance: AMLODIPINE BESYLATE
  15. ATORVASTIN [Concomitant]
     Active Substance: ATORVASTATIN
  16. METFORMIN [Concomitant]
     Active Substance: METFORMIN HYDROCHLORIDE
  17. LISINOPRIL. [Concomitant]
     Active Substance: LISINOPRIL
  18. VITAMIN B12 [Concomitant]
     Active Substance: CYANOCOBALAMIN
  19. LAMICTAL [Concomitant]
     Active Substance: LAMOTRIGINE
  20. LEXAPRO [Concomitant]
     Active Substance: ESCITALOPRAM OXALATE
  21. EPIPEN [Concomitant]
     Active Substance: EPINEPHRINE
  22. CALCIUM [Concomitant]
     Active Substance: CALCIUM
  23. FISH OIL [Concomitant]
     Active Substance: FISH OIL
  24. VITAMIN B12 [Concomitant]
     Active Substance: CYANOCOBALAMIN
  25. BENADRYL [Concomitant]
     Active Substance: DIPHENHYDRAMINE HYDROCHLORIDE
  26. SNYTHROID [Concomitant]
  27. METROGEL OINTMENT [Concomitant]
  28. TRAZODONE [Concomitant]
     Active Substance: TRAZODONE HYDROCHLORIDE

REACTIONS (11)
  - Somnolence [None]
  - No therapeutic response [None]
  - Nausea [None]
  - Vomiting [None]
  - Headache [None]
  - Bedridden [None]
  - Parkinson^s disease [None]
  - Malaise [None]
  - Drug dose omission [None]
  - Feeling abnormal [None]
  - Toxicity to various agents [None]

NARRATIVE: CASE EVENT DATE: 20150516
